FAERS Safety Report 20862229 (Version 3)
Quarter: 2024Q2

REPORT INFORMATION
  Report Type: Spontaneous
  Country: RU (occurrence: RU)
  Receive Date: 20220523
  Receipt Date: 20240523
  Transmission Date: 20240716
  Serious: Yes (Other)
  Sender: FDA-Public Use
  Company Number: RU-NOVARTISPH-NVSC2022RU107292

PATIENT
  Sex: Female

DRUGS (2)
  1. BROLUCIZUMAB [Suspect]
     Active Substance: BROLUCIZUMAB
     Indication: Neovascular age-related macular degeneration
     Dosage: 6 MG (RIGHT EYE)
     Route: 031
     Dates: start: 20220228
  2. BROLUCIZUMAB [Suspect]
     Active Substance: BROLUCIZUMAB
     Dosage: 6 MG (RIGHT EYE)
     Route: 031
     Dates: start: 20220331

REACTIONS (4)
  - Vitritis [Recovering/Resolving]
  - Iridocyclitis [Recovering/Resolving]
  - Visual impairment [Recovering/Resolving]
  - Retinal neovascularisation [Unknown]

NARRATIVE: CASE EVENT DATE: 20220430
